FAERS Safety Report 5115475-2 (Version None)
Quarter: 2006Q3

REPORT INFORMATION
  Report Type: 
  Country: None (occurrence: None)
  Receive Date: 20060927
  Receipt Date: 20060914
  Transmission Date: 20061208
  Serious: Yes (Other)
  Sender: FDA-Public Use
  Company Number: US-JNJFOC-20060903494

PATIENT
  Sex: Female
  Weight: 90.72 kg

DRUGS (19)
  1. REMICADE [Suspect]
     Indication: RHEUMATOID ARTHRITIS
     Route: 042
  2. METHOTREXATE [Concomitant]
  3. DAYPRO [Concomitant]
  4. DYNACIRC [Concomitant]
  5. KLOR-CON [Concomitant]
  6. LISINOPRIL AND HYDROCHLOROTHIAZIDE [Concomitant]
  7. PREDNISONE [Concomitant]
  8. PREMARIN [Concomitant]
  9. PROPOXYPHENE HCL AND ACETAMINOPHEN [Concomitant]
  10. ACETAMINOPHEN [Concomitant]
  11. ZOLOFT [Concomitant]
  12. PROTONIX [Concomitant]
  13. ADVAIR DISKUS 100/50 [Concomitant]
  14. FLOVENT [Concomitant]
  15. ACCOLATE [Concomitant]
  16. GLUCOSAMINE/CHONDROITIN [Concomitant]
  17. ACTONEL [Concomitant]
  18. DARVOCET [Concomitant]
  19. EVOXAC [Concomitant]

REACTIONS (2)
  - ATYPICAL MYCOBACTERIAL INFECTION [None]
  - PSEUDOMONAS INFECTION [None]
